FAERS Safety Report 8436834-6 (Version None)
Quarter: 2012Q2

REPORT INFORMATION
  Report Type: 
  Country: None (occurrence: None)
  Receive Date: 20120614
  Receipt Date: 20120608
  Transmission Date: 20120825
  Serious: Yes (Other)
  Sender: FDA-Public Use
  Company Number: US-MYLANLABS-2012S1008461

PATIENT
  Age: 67 Year
  Sex: Male
  Weight: 72.58 kg

DRUGS (3)
  1. PHENYTOIN SODIUM CAP [Suspect]
     Indication: CONVULSION
     Route: 048
     Dates: end: 20120305
  2. SYNTHROID [Concomitant]
     Route: 048
  3. PHENYTOIN SODIUM CAP [Suspect]
     Route: 048
     Dates: start: 20120313

REACTIONS (3)
  - ROAD TRAFFIC ACCIDENT [None]
  - LOSS OF CONSCIOUSNESS [None]
  - CONVULSION [None]
